FAERS Safety Report 20368878 (Version 5)
Quarter: 2022Q4

REPORT INFORMATION
  Report Type: Report from Study
  Country: US (occurrence: US)
  Receive Date: 20220124
  Receipt Date: 20221006
  Transmission Date: 20230113
  Serious: No
  Sender: FDA-Public Use
  Company Number: US-NOVARTISTESTPH-NVSC2022US013485

PATIENT
  Age: 0 Year
  Sex: Female

DRUGS (1)
  1. ZOLGENSMA [Suspect]
     Active Substance: ONASEMNOGENE ABEPARVOVEC-XIOI
     Indication: Spinal muscular atrophy
     Dosage: 03.42 KG, ONCE/SINGLE
     Route: 042
     Dates: start: 20220114, end: 20220114

REACTIONS (4)
  - Infantile colic [Unknown]
  - Concomitant disease aggravated [Unknown]
  - Sleep disorder [Unknown]
  - Torticollis [Unknown]

NARRATIVE: CASE EVENT DATE: 20220114
